FAERS Safety Report 9589419 (Version 1)
Quarter: 2013Q4

REPORT INFORMATION
  Report Type: Spontaneous
  Country: US (occurrence: US)
  Receive Date: 20131003
  Receipt Date: 20131003
  Transmission Date: 20140711
  Serious: No
  Sender: FDA-Public Use
  Company Number: US-AMGEN-USASP2012070148

PATIENT
  Sex: Female

DRUGS (9)
  1. ENBREL [Suspect]
     Indication: RHEUMATOID ARTHRITIS
     Dosage: 50 MG, QWK
     Route: 058
  2. EVOXAC [Concomitant]
     Dosage: 30 MG, UNK
  3. FOLIC ACID [Concomitant]
     Dosage: 20 MG, UNK
  4. METHOCARBAMOL [Concomitant]
     Dosage: 500 MG, UNK
  5. HYDROCODONE                        /00060002/ [Concomitant]
     Dosage: UNK
  6. ATENOLOL [Concomitant]
     Dosage: 100 MG, UNK
  7. PRILOSEC                           /00661201/ [Concomitant]
     Dosage: 20 MG, UNK
  8. TRAMADOL HCL [Concomitant]
     Dosage: 50 MG, UNK
  9. LEFLUNOMIDE [Concomitant]
     Dosage: 10 MG, UNK

REACTIONS (1)
  - Infection [Unknown]
